FAERS Safety Report 5605900-2 (Version None)
Quarter: 2008Q1

REPORT INFORMATION
  Report Type: 
  Country: None (occurrence: None)
  Receive Date: 20080125
  Receipt Date: 20080125
  Transmission Date: 20080703
  Serious: Yes (Hospitalization)
  Sender: FDA-Public Use
  Company Number: None

PATIENT
  Age: 65 Year
  Sex: Female
  Weight: 101 kg

DRUGS (14)
  1. PEG-INTRON [Suspect]
  2. FERROUS GLUCONATER [Concomitant]
  3. SPIRONOLACTONE [Concomitant]
  4. BENICAR [Concomitant]
  5. PRILOSEC [Concomitant]
  6. MIRAPEX [Concomitant]
  7. FLAGYL [Concomitant]
  8. HYDROCODONE BITARTRATE [Concomitant]
  9. ASCORBIC ACID [Concomitant]
  10. SENNA GEM [Concomitant]
  11. BENZONATATE [Concomitant]
  12. KEFLEX [Concomitant]
  13. VICODEN [Concomitant]
  14. OCEAN NASAL [Concomitant]

REACTIONS (3)
  - EPISTAXIS [None]
  - OEDEMA [None]
  - POST PROCEDURAL CELLULITIS [None]
